FAERS Safety Report 7929592-2 (Version None)
Quarter: 2011Q4

REPORT INFORMATION
  Report Type: 
  Country: None (occurrence: None)
  Receive Date: 20111121
  Receipt Date: 20111111
  Transmission Date: 20120403
  Serious: Yes (Other)
  Sender: FDA-Public Use
  Company Number: US-US-EMD SERONO, INC.-7090692

PATIENT
  Sex: Female
  Weight: 110 kg

DRUGS (10)
  1. PROPRANOLOL [Concomitant]
  2. ACETAMINOPHEN [Concomitant]
     Indication: PREMEDICATION
  3. FOLIC ACID [Concomitant]
  4. VITAMIN D [Concomitant]
  5. REBIF [Suspect]
     Route: 058
  6. COUMADIN [Concomitant]
     Indication: THROMBOSIS
  7. REBIF [Suspect]
     Indication: MULTIPLE SCLEROSIS
     Route: 058
     Dates: start: 20110918
  8. REBIF [Suspect]
     Route: 058
  9. GABAPENTIN [Concomitant]
  10. METHOTREXATE [Concomitant]
     Indication: RHEUMATOID ARTHRITIS

REACTIONS (3)
  - PNEUMONIA [None]
  - INJECTION SITE PAIN [None]
  - MUSCLE SPASMS [None]
